FAERS Safety Report 17171750 (Version 1)
Quarter: 2019Q4

REPORT INFORMATION
  Report Type: Spontaneous
  Country: GB (occurrence: GB)
  Receive Date: 20191218
  Receipt Date: 20191218
  Transmission Date: 20200122
  Serious: Yes (Other)
  Sender: FDA-Public Use
  Company Number: GB-SA-2019SA347292

PATIENT
  Age: 74 Year
  Sex: Male

DRUGS (1)
  1. CABAZITAXEL [Suspect]
     Active Substance: CABAZITAXEL
     Indication: PROSTATE CANCER
     Dosage: 48 MG, UNK
     Route: 042
     Dates: start: 20150219, end: 20150903

REACTIONS (8)
  - Oedema peripheral [Unknown]
  - Feeling hot [Unknown]
  - Nausea [Unknown]
  - Cellulitis [Unknown]
  - Alopecia [Unknown]
  - Fatigue [Unknown]
  - Erythema [Unknown]
  - Pain [Unknown]

NARRATIVE: CASE EVENT DATE: 20150312
